FAERS Safety Report 20839343 (Version 2)
Quarter: 2022Q2

REPORT INFORMATION
  Report Type: Spontaneous
  Country: US (occurrence: US)
  Receive Date: 20220517
  Receipt Date: 20220517
  Transmission Date: 20220721
  Serious: No
  Sender: FDA-Public Use
  Company Number: US-PFIZER INC-202101538697

PATIENT
  Age: 60 Year
  Sex: Female
  Weight: 71.21 kg

DRUGS (14)
  1. LYRICA [Suspect]
     Active Substance: PREGABALIN
     Indication: Neuropathy peripheral
     Dosage: 25 MG, 2X/DAY
     Route: 048
  2. LYRICA [Suspect]
     Active Substance: PREGABALIN
     Indication: Pain
     Dosage: 50 MG
  3. LYRICA [Suspect]
     Active Substance: PREGABALIN
     Indication: Neuralgia
     Dosage: 100 MG, 2X/DAY
  4. LYRICA [Suspect]
     Active Substance: PREGABALIN
     Indication: Spinal disorder
  5. LYRICA [Suspect]
     Active Substance: PREGABALIN
     Indication: Spinal osteoarthritis
  6. LYRICA [Suspect]
     Active Substance: PREGABALIN
     Indication: Spondylitis
  7. LYRICA [Suspect]
     Active Substance: PREGABALIN
     Indication: Intervertebral disc degeneration
  8. CELEBREX [Suspect]
     Active Substance: CELECOXIB
     Indication: Arthralgia
     Dosage: 200 MG, 2X/DAY
     Route: 048
  9. CELEBREX [Suspect]
     Active Substance: CELECOXIB
     Indication: Arthritis
  10. CELEBREX [Suspect]
     Active Substance: CELECOXIB
     Indication: Spinal pain
  11. CELEBREX [Suspect]
     Active Substance: CELECOXIB
     Indication: Spinal osteoarthritis
  12. CELEBREX [Suspect]
     Active Substance: CELECOXIB
     Indication: Spondylitis
  13. CELEBREX [Suspect]
     Active Substance: CELECOXIB
     Indication: Intervertebral disc degeneration
  14. CELEBREX [Suspect]
     Active Substance: CELECOXIB
     Indication: Pain

REACTIONS (3)
  - Intentional product misuse [Unknown]
  - Product physical issue [Unknown]
  - Drug ineffective [Unknown]
